FAERS Safety Report 8499552-4 (Version None)
Quarter: 2012Q3

REPORT INFORMATION
  Report Type: 
  Country: None (occurrence: None)
  Receive Date: 20120710
  Receipt Date: 20120703
  Transmission Date: 20120928
  Serious: Yes (Other)
  Sender: FDA-Public Use
  Company Number: FR-JNJFOC-20120701440

PATIENT

DRUGS (5)
  1. DOXORUBICIN HCL [Suspect]
     Indication: MANTLE CELL LYMPHOMA
     Route: 042
  2. DEXAMETHASONE [Suspect]
     Indication: MANTLE CELL LYMPHOMA
     Route: 065
  3. BORTEZOMIB [Suspect]
     Indication: MANTLE CELL LYMPHOMA
     Route: 065
  4. CHLORAMBUCIL [Suspect]
     Indication: MANTLE CELL LYMPHOMA
     Route: 065
  5. RITUXIMAB [Suspect]
     Indication: MANTLE CELL LYMPHOMA
     Route: 065

REACTIONS (2)
  - TOXICITY TO VARIOUS AGENTS [None]
  - NEUROTOXICITY [None]
